FAERS Safety Report 25457309 (Version 2)
Quarter: 2025Q2

REPORT INFORMATION
  Report Type: Spontaneous
  Country: US (occurrence: US)
  Receive Date: 20250619
  Receipt Date: 20250627
  Transmission Date: 20250717
  Serious: No
  Sender: ABBVIE
  Company Number: US-ABBVIE-6333071

PATIENT

DRUGS (1)
  1. BOTOX COSMETIC [Suspect]
     Active Substance: ONABOTULINUMTOXINA
     Indication: Skin wrinkling
     Route: 030

REACTIONS (6)
  - Haematoma [Unknown]
  - Therapeutic product effect incomplete [Not Recovered/Not Resolved]
  - Product preparation error [Unknown]
  - Product storage error [Unknown]
  - Poor quality product administered [Not Recovered/Not Resolved]
  - Product packaging issue [Not Recovered/Not Resolved]
